FAERS Safety Report 24243364 (Version 1)
Quarter: 2024Q3

REPORT INFORMATION
  Report Type: Spontaneous
  Country: CN (occurrence: CN)
  Receive Date: 20240823
  Receipt Date: 20240823
  Transmission Date: 20241017
  Serious: Yes (Life-Threatening, Disabling)
  Sender: NOVARTIS
  Company Number: CN-002147023-NVSC2024CN170798

PATIENT
  Age: 68 Year
  Sex: Male
  Weight: 52 kg

DRUGS (2)
  1. ENTRESTO [Suspect]
     Active Substance: SACUBITRIL\VALSARTAN
     Indication: Myocardial infarction
     Dosage: 50 MG, QD
     Route: 048
     Dates: start: 20240517, end: 20240521
  2. METOPROLOL [Concomitant]
     Active Substance: METOPROLOL
     Indication: Myocardial infarction
     Dosage: 23.75 MG, QD (SUSTAINED-RELEASE TABLETS)
     Route: 048
     Dates: start: 20240516, end: 20240522

REACTIONS (2)
  - Hypotension [Recovered/Resolved]
  - Inappropriate schedule of product administration [Unknown]

NARRATIVE: CASE EVENT DATE: 20240521
